FAERS Safety Report 4913066-7 (Version None)
Quarter: 2006Q1

REPORT INFORMATION
  Report Type: 
  Country: None (occurrence: None)
  Receive Date: 20060210
  Receipt Date: 20060127
  Transmission Date: 20060701
  Serious: Yes (Death)
  Sender: FDA-Public Use
  Company Number: L05-USA-03935-07

PATIENT
  Age: 23 Year
  Sex: Male
  Weight: 110.2241 kg

DRUGS (7)
  1. CITALOPRAM [Suspect]
  2. WELLBUTRIN SR [Suspect]
     Dosage: 150 MG
  3. ETHANOL [Suspect]
  4. NEXIUM [Concomitant]
  5. TOPAMAX [Concomitant]
  6. LEXAPRO [Concomitant]
  7. ZYRTEC [Concomitant]

REACTIONS (7)
  - BRAIN OEDEMA [None]
  - CARDIAC ARREST [None]
  - COMPLETED SUICIDE [None]
  - EXCORIATION [None]
  - INTENTIONAL OVERDOSE [None]
  - MEDICATION RESIDUE [None]
  - RESPIRATORY ARREST [None]
